FAERS Safety Report 4735402-7 (Version None)
Quarter: 2005Q3

REPORT INFORMATION
  Report Type: 
  Country: None (occurrence: None)
  Receive Date: 20050805
  Receipt Date: 20040804
  Transmission Date: 20060218
  Serious: Yes (Hospitalization, Disabling)
  Sender: FDA-Public Use
  Company Number: US-ROCHE-376772

PATIENT
  Age: 30 Year
  Sex: Male

DRUGS (1)
  1. ACCUTANE [Suspect]
     Indication: ACNE
     Route: 065
     Dates: start: 19880815, end: 19890215

REACTIONS (26)
  - ANXIETY [None]
  - BRADYCARDIA [None]
  - CERVICOBRACHIAL SYNDROME [None]
  - CHEST DISCOMFORT [None]
  - COLITIS [None]
  - COLITIS ULCERATIVE [None]
  - DEPRESSION [None]
  - EPISTAXIS [None]
  - ERUCTATION [None]
  - FATIGUE [None]
  - GASTROINTESTINAL DISORDER [None]
  - GASTROINTESTINAL HAEMORRHAGE [None]
  - GLOSSODYNIA [None]
  - HAEMORRHOIDS [None]
  - HYPOGLYCAEMIA [None]
  - INFLAMMATORY BOWEL DISEASE [None]
  - INTERVERTEBRAL DISC PROTRUSION [None]
  - IRRITABLE BOWEL SYNDROME [None]
  - MULTI-ORGAN DISORDER [None]
  - PALPITATIONS [None]
  - PROCTITIS ULCERATIVE [None]
  - SKIN EXFOLIATION [None]
  - SUPRAVENTRICULAR EXTRASYSTOLES [None]
  - TACHYCARDIA [None]
  - UPPER RESPIRATORY TRACT INFECTION [None]
  - VENTRICULAR EXTRASYSTOLES [None]
